FAERS Safety Report 4743835-8 (Version None)
Quarter: 2005Q3

REPORT INFORMATION
  Report Type: 
  Country: None (occurrence: None)
  Receive Date: 20050812
  Receipt Date: 20050802
  Transmission Date: 20060218
  Serious: Yes (Other)
  Sender: FDA-Public Use
  Company Number: JP-MERCK-0508USA01139

PATIENT

DRUGS (1)
  1. TRUSOPT [Suspect]
     Indication: OCULAR HYPERTENSION
     Route: 047

REACTIONS (1)
  - CORNEAL DISORDER [None]
